FAERS Safety Report 12487567 (Version 1)
Quarter: 2016Q2

REPORT INFORMATION
  Report Type: Spontaneous
  Country: TR (occurrence: TR)
  Receive Date: 20160622
  Receipt Date: 20160622
  Transmission Date: 20160815
  Serious: Yes (Hospitalization, Other)
  Sender: FDA-Public Use
  Company Number: TR-SCIEGEN PHARMACEUTICALS INC-2016SCILIT00222

PATIENT
  Age: 42 Year
  Sex: Male

DRUGS (3)
  1. ASA [Suspect]
     Active Substance: ASPIRIN
     Indication: ACUTE MYOCARDIAL INFARCTION
     Dosage: 300 MG, UNK
     Route: 065
  2. CLOPIDOGREL [Suspect]
     Active Substance: CLOPIDOGREL BISULFATE
     Indication: ACUTE MYOCARDIAL INFARCTION
     Dosage: 600 MG, UNK
     Route: 065
  3. UFH [Suspect]
     Active Substance: HEPARIN SODIUM
     Indication: ACUTE MYOCARDIAL INFARCTION
     Dosage: 7500 UNITS
     Route: 065

REACTIONS (5)
  - Coronary artery occlusion [Unknown]
  - Dyspnoea [Unknown]
  - Pulmonary alveolar haemorrhage [Unknown]
  - Haemoglobin decreased [None]
  - Haemoptysis [Unknown]
